FAERS Safety Report 6861561-6 (Version None)
Quarter: 2010Q3

REPORT INFORMATION
  Report Type: 
  Country: None (occurrence: None)
  Receive Date: 20100721
  Receipt Date: 20100707
  Transmission Date: 20110219
  Serious: Yes (Other)
  Sender: FDA-Public Use
  Company Number: US-BAYER-200943452NA

PATIENT
  Age: 45 Year
  Sex: Female
  Weight: 164 kg

DRUGS (10)
  1. MAGNEVIST [Suspect]
     Indication: NUCLEAR MAGNETIC RESONANCE IMAGING
     Dosage: TOTAL DAILY DOSE: 20 ML
     Dates: start: 20070407, end: 20070407
  2. UNSPECIFIED GADOLINIUM BASED CONTRAST AGENTS [Suspect]
     Indication: NUCLEAR MAGNETIC RESONANCE IMAGING
     Dosage: ^4 OR 5 MRI'S WITH CONTRAST DYE^; RECORDS ELSWHERE STATE APPROXIMATELY 12 MRI'S
  3. SPIRIVA [Concomitant]
  4. SINGULAIR [Concomitant]
  5. GABAPENTIN [Concomitant]
  6. LISINOPRIL [Concomitant]
  7. CYMBALTA [Concomitant]
  8. XANAX [Concomitant]
  9. LOSARTAN POSTASSIUM [Concomitant]
  10. ALBUTEROL [Concomitant]

REACTIONS (13)
  - BLISTER [None]
  - DRY SKIN [None]
  - ERYTHEMA [None]
  - NEPHROGENIC SYSTEMIC FIBROSIS [None]
  - OEDEMA PERIPHERAL [None]
  - RASH PRURITIC [None]
  - SKIN DISCOLOURATION [None]
  - SKIN HYPERTROPHY [None]
  - SKIN INDURATION [None]
  - SKIN LESION [None]
  - SKIN NODULE [None]
  - SKIN PLAQUE [None]
  - SKIN ULCER [None]
